FAERS Safety Report 17591022 (Version 2)
Quarter: 2020Q2

REPORT INFORMATION
  Report Type: Spontaneous
  Country: DE (occurrence: DE)
  Receive Date: 20200327
  Receipt Date: 20200409
  Transmission Date: 20200713
  Serious: Yes (Other)
  Sender: FDA-Public Use
  Company Number: DE-PFIZER INC-2020127298

PATIENT
  Sex: Female

DRUGS (2)
  1. COSENTYX [Suspect]
     Active Substance: SECUKINUMAB
     Dosage: 300 MG, Q4W (2X 150MG)
     Dates: start: 201904
  2. METHOTREXATE SODIUM. [Suspect]
     Active Substance: METHOTREXATE SODIUM
     Dosage: UNK

REACTIONS (6)
  - Skin disorder [Unknown]
  - Therapeutic product effect decreased [Unknown]
  - Breast cancer [Unknown]
  - Mucosal dryness [Unknown]
  - Dry eye [Unknown]
  - Arthralgia [Unknown]
